FAERS Safety Report 23085421 (Version 1)
Quarter: 2023Q4

REPORT INFORMATION
  Report Type: Spontaneous
  Country: FR (occurrence: FR)
  Receive Date: 20231019
  Receipt Date: 20231019
  Transmission Date: 20240109
  Serious: Yes (Hospitalization)
  Sender: FDA-Public Use
  Company Number: None

PATIENT
  Age: 57 Year
  Sex: Male
  Weight: 59 kg

DRUGS (13)
  1. DAPTOMYCIN [Suspect]
     Active Substance: DAPTOMYCIN
     Indication: Arthritis infective
     Dosage: 700 MG, 1X/DAY
     Route: 042
     Dates: start: 20211231, end: 20220122
  2. TEICOPLANIN [Suspect]
     Active Substance: TEICOPLANIN
     Indication: Arthritis infective
     Dosage: FREQ:12 H;1600MG/DAY
     Route: 042
     Dates: start: 20220113, end: 20220122
  3. DORZOLAMIDE HYDROCHLORIDE [Concomitant]
     Active Substance: DORZOLAMIDE HYDROCHLORIDE
     Dosage: UNK
  4. LAMOTRIGINE [Concomitant]
     Active Substance: LAMOTRIGINE
     Dosage: UNK
  5. TEGRETOL [Concomitant]
     Active Substance: CARBAMAZEPINE
     Dosage: UNK
  6. MORPHINE SULFATE [Concomitant]
     Active Substance: MORPHINE SULFATE
     Dosage: UNK
  7. DOLIPRANE [Concomitant]
     Active Substance: ACETAMINOPHEN
     Dosage: UNK
  8. POLYETHYLENE GLYCOL 3350 [Concomitant]
     Active Substance: POLYETHYLENE GLYCOL 3350
     Dosage: UNK
  9. CAFFEINE\PHENOBARBITAL [Concomitant]
     Active Substance: CAFFEINE\PHENOBARBITAL
     Dosage: UNK
  10. AZTREONAM [Concomitant]
     Active Substance: AZTREONAM
     Dosage: UNK
  11. VALIUM [Concomitant]
     Active Substance: DIAZEPAM
     Dosage: UNK
  12. DIAZEPAM [Concomitant]
     Active Substance: DIAZEPAM
     Dosage: UNK
  13. LEVETIRACETAM [Concomitant]
     Active Substance: LEVETIRACETAM
     Dosage: UNK

REACTIONS (1)
  - Rash maculo-papular [Recovered/Resolved]

NARRATIVE: CASE EVENT DATE: 20220122
